FAERS Safety Report 10266188 (Version 1)
Quarter: 2014Q2

REPORT INFORMATION
  Report Type: Report from Study
  Country: US (occurrence: US)
  Receive Date: 20140627
  Receipt Date: 20140627
  Transmission Date: 20141212
  Serious: Yes (Hospitalization)
  Sender: FDA-Public Use
  Company Number: US-ABBVIE-14P-163-1249610-00

PATIENT
  Age: 64 Year
  Sex: Female
  Weight: 81.72 kg

DRUGS (2)
  1. HUMIRA [Suspect]
     Indication: RHEUMATOID ARTHRITIS
     Route: 058
     Dates: end: 2014
  2. METHOTREXATE [Concomitant]
     Indication: RHEUMATOID ARTHRITIS

REACTIONS (9)
  - Cough [Recovered/Resolved]
  - Depression [Unknown]
  - Fall [Recovered/Resolved]
  - Musculoskeletal pain [Not Recovered/Not Resolved]
  - Arthralgia [Recovered/Resolved]
  - Blood glucose increased [Recovered/Resolved]
  - Hypertension [Recovered/Resolved]
  - Weight decreased [Recovered/Resolved]
  - Weight increased [Not Recovered/Not Resolved]
